FAERS Safety Report 4710454-9 (Version None)
Quarter: 2005Q3

REPORT INFORMATION
  Report Type: 
  Country: None (occurrence: None)
  Receive Date: 20050707
  Receipt Date: 20050622
  Transmission Date: 20060218
  Serious: Yes (Life-Threatening, Other)
  Sender: FDA-Public Use
  Company Number: GBS050617696

PATIENT
  Age: 63 Year
  Sex: Male

DRUGS (5)
  1. FLUOXETINE [Suspect]
     Indication: DEPRESSION
     Dosage: 20 MG
     Dates: start: 20050311, end: 20050316
  2. PAROXETINE HCL [Concomitant]
  3. BECLOMETHASONE DIPROPIONATE [Concomitant]
  4. SALBUTAMOL [Concomitant]
  5. SALMETEROL [Concomitant]

REACTIONS (4)
  - AGITATION [None]
  - RESTLESSNESS [None]
  - SLEEP DISORDER [None]
  - SUICIDAL IDEATION [None]
